FAERS Safety Report 4628092-5 (Version None)
Quarter: 2005Q2

REPORT INFORMATION
  Report Type: 
  Country: None (occurrence: None)
  Receive Date: 20050406
  Receipt Date: 20041022
  Transmission Date: 20051028
  Serious: Yes (Life-Threatening, Hospitalization)
  Sender: FDA-Public Use
  Company Number: JPKYO-S-20040038

PATIENT
  Age: 63 Year

DRUGS (5)
  1. NAVELBINE [Suspect]
     Dosage: 40MG PER DAY
     Route: 042
     Dates: start: 20040630, end: 20040714
  2. NAVELBINE [Suspect]
     Dosage: 35MG PER DAY
     Route: 042
     Dates: start: 20040730, end: 20040820
  3. NASEA [Concomitant]
     Dates: start: 20040630, end: 20040820
  4. UNKNOWN MEDICATION [Concomitant]
     Dates: start: 20040630, end: 20040721
  5. HEPARIN [Concomitant]
     Dates: start: 20040813, end: 20040820

REACTIONS (7)
  - ASTHENIA [None]
  - DECREASED APPETITE [None]
  - DYSPNOEA [None]
  - INTERSTITIAL LUNG DISEASE [None]
  - MALAISE [None]
  - PLEURAL EFFUSION [None]
  - PYREXIA [None]
